FAERS Safety Report 6608637-6 (Version None)
Quarter: 2010Q1

REPORT INFORMATION
  Report Type: 
  Country: None (occurrence: None)
  Receive Date: 20100301
  Receipt Date: 20100215
  Transmission Date: 20100710
  Serious: Yes (Other)
  Sender: FDA-Public Use
  Company Number: US-PFIZER INC-2009291981

PATIENT
  Sex: Female
  Weight: 49.887 kg

DRUGS (2)
  1. GEODON [Suspect]
     Indication: SCHIZOPHRENIA, PARANOID TYPE
     Dosage: 20 MG, 2X/DAY
     Route: 048
     Dates: start: 20090813
  2. LEXAPRO [Concomitant]

REACTIONS (6)
  - AMENORRHOEA [None]
  - ANTIPHOSPHOLIPID SYNDROME [None]
  - DRUG INEFFECTIVE [None]
  - INSOMNIA [None]
  - MUSCLE DISORDER [None]
  - RESTLESSNESS [None]
